FAERS Safety Report 10241894 (Version 1)
Quarter: 2014Q2

REPORT INFORMATION
  Report Type: Spontaneous
  Country: US (occurrence: US)
  Receive Date: 20140617
  Receipt Date: 20140617
  Transmission Date: 20141212
  Serious: No
  Sender: FDA-Public Use
  Company Number: US-BAYER-2014-090656

PATIENT
  Age: 31 Year
  Sex: Female
  Weight: 60.32 kg

DRUGS (2)
  1. MIDOL EXTENDED RELIEF CAPLET [Suspect]
     Indication: DYSMENORRHOEA
     Dosage: 2 DF, UNK
     Route: 048
  2. ACETAMINOPHEN [Suspect]
     Indication: DYSMENORRHOEA
     Dosage: 3 DF, UNK

REACTIONS (1)
  - Drug ineffective [None]
